FAERS Safety Report 8815533 (Version 4)
Quarter: 2012Q4

REPORT INFORMATION
  Report Type: 
  Country: JP (occurrence: JP)
  Receive Date: 20120928
  Receipt Date: 20121112
  Transmission Date: 20130627
  Serious: Yes (Hospitalization, Other)
  Sender: FDA-Public Use
  Company Number: JP-JNJFOC-20120706868

PATIENT
  Age: 64 Year
  Sex: Male
  Weight: 70 kg

DRUGS (8)
  1. REMICADE [Suspect]
     Indication: RHEUMATOID ARTHRITIS
     Route: 042
     Dates: start: 20100309
  2. REMICADE [Suspect]
     Indication: RHEUMATOID ARTHRITIS
     Route: 042
     Dates: start: 20110803
  3. REMICADE [Suspect]
     Indication: RHEUMATOID ARTHRITIS
     Route: 042
     Dates: start: 20111122
  4. RHEUMATREX [Suspect]
     Indication: RHEUMATOID ARTHRITIS
     Route: 048
     Dates: start: 20091023, end: 20120105
  5. PREDNISOLONE [Concomitant]
     Indication: RHEUMATOID ARTHRITIS
     Route: 048
     Dates: end: 20120105
  6. PARIET [Concomitant]
     Indication: PROPHYLAXIS
     Route: 048
     Dates: end: 20120105
  7. FOLIAMIN [Concomitant]
     Indication: PROPHYLAXIS
     Route: 065
     Dates: end: 20120105
  8. RHEUMATREX [Concomitant]
     Indication: RHEUMATOID ARTHRITIS
     Route: 048
     Dates: start: 20120503

REACTIONS (3)
  - Tuberculosis gastrointestinal [Recovering/Resolving]
  - Peritoneal tuberculosis [Recovering/Resolving]
  - Pleural effusion [Unknown]
